FAERS Safety Report 8096229-4 (Version None)
Quarter: 2011Q4

REPORT INFORMATION
  Report Type: 
  Country: None (occurrence: None)
  Receive Date: 20111222
  Receipt Date: 20111010
  Transmission Date: 20120403
  Serious: Yes (Hospitalization)
  Sender: FDA-Public Use
  Company Number: UTC-011088

PATIENT
  Age: 55 Year
  Sex: Female
  Weight: 85 kg

DRUGS (3)
  1. DIURETICS (DIURETICS) (UNKNOWN) [Concomitant]
  2. TYVASO [Suspect]
     Indication: PULMONARY ARTERIAL HYPERTENSION
     Dosage: 216  MCG  (54 MCG, 4 IN 1 D), INHALATION
     Route: 055
     Dates: start: 20100713
  3. REVATIO (SILDENAFIL CITRATE) (UNKNOWN) [Concomitant]

REACTIONS (4)
  - RESPIRATORY TRACT INFECTION [None]
  - DYSPNOEA [None]
  - CHEST PAIN [None]
  - BLOOD GLUCOSE INCREASED [None]
